FAERS Safety Report 6249622-6 (Version None)
Quarter: 2009Q2

REPORT INFORMATION
  Report Type: 
  Country: None (occurrence: None)
  Receive Date: 20090629
  Receipt Date: 20090622
  Transmission Date: 20091009
  Serious: Yes (Other)
  Sender: FDA-Public Use
  Company Number: US-ELI_LILLY_AND_COMPANY-US200906005148

PATIENT
  Sex: Female

DRUGS (4)
  1. HUMALOG [Suspect]
     Dosage: UNK, 3/D
  2. HUMULIN N [Suspect]
     Dosage: UNK, 2/D
  3. XANAX [Concomitant]
  4. DIOVAN [Concomitant]

REACTIONS (9)
  - CARDIAC DISORDER [None]
  - CATARACT [None]
  - CHEST PAIN [None]
  - DIZZINESS [None]
  - EYE HAEMORRHAGE [None]
  - HEAD INJURY [None]
  - LOSS OF CONSCIOUSNESS [None]
  - RETINAL DETACHMENT [None]
  - VISUAL IMPAIRMENT [None]
